FAERS Safety Report 8034241-1 (Version None)
Quarter: 2012Q1

REPORT INFORMATION
  Report Type: 
  Country: None (occurrence: None)
  Receive Date: 20120110
  Receipt Date: 20120105
  Transmission Date: 20120608
  Serious: Yes (Other)
  Sender: FDA-Public Use
  Company Number: GR-ROCHE-1027623

PATIENT
  Age: 86 Year
  Sex: Female

DRUGS (7)
  1. IBANDRONATE SODIUM [Suspect]
     Indication: OSTEOPOROSIS
     Route: 048
     Dates: start: 20111201
  2. DIOVAN [Concomitant]
     Indication: HYPERTENSION
  3. EVION [Concomitant]
  4. LIPITOR [Concomitant]
     Indication: HYPERCHOLESTEROLAEMIA
  5. CLONAZEPAM [Concomitant]
     Indication: CEREBRAL ATROPHY
  6. AMOXICILLIN [Interacting]
     Indication: PERIODONTITIS
  7. REMERON [Concomitant]
     Indication: CEREBRAL ATROPHY

REACTIONS (4)
  - DRUG INTERACTION [None]
  - PERIODONTITIS [None]
  - SKIN EXFOLIATION [None]
  - FACE OEDEMA [None]
